FAERS Safety Report 9511548 (Version 2)
Quarter: 2013Q4

REPORT INFORMATION
  Report Type: Spontaneous
  Country: BR (occurrence: BR)
  Receive Date: 20130910
  Receipt Date: 20131211
  Transmission Date: 20140711
  Serious: Yes (Hospitalization, Other)
  Sender: FDA-Public Use
  Company Number: BR-ELI_LILLY_AND_COMPANY-BR201308009572

PATIENT
  Age: 70 Year
  Sex: Male
  Weight: 66 kg

DRUGS (8)
  1. HUMULIN N [Suspect]
     Indication: DIABETES MELLITUS
     Dosage: UNK, UNKNOWN
     Route: 058
  2. HUMALOG MIX 25 [Suspect]
     Indication: DIABETES MELLITUS
     Dosage: 41 IU, EACH MORNING
     Route: 058
     Dates: start: 201307
  3. HUMALOG MIX 25 [Suspect]
     Dosage: 14 IU, EACH EVENING
     Route: 058
     Dates: start: 201307
  4. SELOZOK [Concomitant]
     Indication: CATHETERISATION CARDIAC
     Dosage: 50 MG, QD
     Route: 065
  5. SELOZOK [Concomitant]
     Indication: ANGIOPLASTY
  6. AAS [Concomitant]
     Indication: BLOOD DISORDER
     Dosage: 100 MG, QD
     Route: 065
  7. CRESTOR [Concomitant]
     Indication: BLOOD CHOLESTEROL
     Dosage: 5 MG, QD
     Route: 065
  8. JANUMET [Concomitant]
     Indication: DIABETES MELLITUS
     Dosage: 850 MG, QD
     Route: 065

REACTIONS (6)
  - Sepsis [Recovered/Resolved]
  - Urinary tract infection [Not Recovered/Not Resolved]
  - Blood glucose abnormal [Unknown]
  - Blood glucose fluctuation [Not Recovered/Not Resolved]
  - Drug ineffective [Unknown]
  - Retching [Recovered/Resolved]
